FAERS Safety Report 9254111 (Version 1)
Quarter: 2013Q2

REPORT INFORMATION
  Report Type: Spontaneous
  Country: US (occurrence: None)
  Receive Date: 20130422
  Receipt Date: 20130422
  Transmission Date: 20140414
  Serious: Yes (Hospitalization)
  Sender: FDA-Public Use
  Company Number: None

PATIENT
  Age: 58 Year
  Sex: Male
  Weight: 66.5 kg

DRUGS (2)
  1. BACLOFEN [Suspect]
     Indication: AMYOTROPHIC LATERAL SCLEROSIS
     Dates: start: 20130107
  2. DIAZEPAM [Suspect]
     Indication: AMYOTROPHIC LATERAL SCLEROSIS
     Dates: start: 20130207, end: 20130214

REACTIONS (6)
  - Muscle spasms [None]
  - Sedation [None]
  - Drug effect decreased [None]
  - Respiratory depression [None]
  - Hypotonia [None]
  - Toxicity to various agents [None]
